FAERS Safety Report 25814246 (Version 2)
Quarter: 2025Q4

REPORT INFORMATION
  Report Type: Report from Study
  Country: US (occurrence: US)
  Receive Date: 20250917
  Receipt Date: 20251014
  Transmission Date: 20260117
  Serious: Yes (Other)
  Sender: ABBVIE
  Company Number: US-ABBVIE-6461047

PATIENT
  Age: 56 Year
  Sex: Male

DRUGS (5)
  1. SKYRIZI [Suspect]
     Active Substance: RISANKIZUMAB-RZAA
     Indication: Crohn^s disease
     Dosage: TIME INTERVAL: TOTAL: STRENGTH:360MG/2.4M, WEEK 12
     Route: 058
     Dates: start: 20250530, end: 20250530
  2. SKYRIZI [Suspect]
     Active Substance: RISANKIZUMAB-RZAA
     Dosage: STRENGTH:360MG/2.4M, EVERY 8 WEEKS THEREAFTER, FIRST ADMIN DATE 2025
     Route: 058
  3. SKYRIZI [Suspect]
     Active Substance: RISANKIZUMAB-RZAA
     Indication: Crohn^s disease
     Dosage: TIME INTERVAL: TOTAL: STRENGTH:600MG, WEEK 0
     Route: 042
     Dates: start: 20250213, end: 20250213
  4. SKYRIZI [Suspect]
     Active Substance: RISANKIZUMAB-RZAA
     Indication: Crohn^s disease
     Dosage: TIME INTERVAL: TOTAL: STRENGTH:600MG, WEEK 4
     Route: 042
     Dates: start: 20250307, end: 20250307
  5. SKYRIZI [Suspect]
     Active Substance: RISANKIZUMAB-RZAA
     Indication: Crohn^s disease
     Dosage: TIME INTERVAL: TOTAL: STRENGTH:600MG, WEEK 8
     Route: 042
     Dates: start: 20250404, end: 20250404

REACTIONS (3)
  - Oesophageal carcinoma [Unknown]
  - Precancerous condition [Unknown]
  - Incision site inflammation [Unknown]

NARRATIVE: CASE EVENT DATE: 20250101
